FAERS Safety Report 8090294-6 (Version None)
Quarter: 2012Q1

REPORT INFORMATION
  Report Type: 
  Country: None (occurrence: None)
  Receive Date: 20120129
  Receipt Date: 20111111
  Transmission Date: 20120608
  Serious: No
  Sender: FDA-Public Use
  Company Number: US-ABBOTT-11P-163-0873649-00

PATIENT
  Age: 31 Year
  Sex: Female

DRUGS (7)
  1. CELEBREX [Concomitant]
     Indication: ARTHRALGIA
     Dosage: DAILY
  2. FLEXERIL [Concomitant]
     Indication: MYALGIA
     Dosage: DAILY
  3. VITAMIN D [Concomitant]
     Indication: VITAMIN D DECREASED
     Dosage: DAILY
  4. HUMIRA [Suspect]
     Indication: PSORIATIC ARTHROPATHY
  5. OMEPRAZOLE [Concomitant]
     Indication: DYSPEPSIA
  6. AMBIEN [Concomitant]
     Indication: INSOMNIA
     Dosage: NIGHTLY
  7. XANAX [Concomitant]
     Indication: PANIC ATTACK
     Dosage: DAILY

REACTIONS (3)
  - CHEILITIS [None]
  - CHAPPED LIPS [None]
  - LIP HAEMORRHAGE [None]
